FAERS Safety Report 8494439-5 (Version None)
Quarter: 2012Q3

REPORT INFORMATION
  Report Type: 
  Country: None (occurrence: None)
  Receive Date: 20120709
  Receipt Date: 20120629
  Transmission Date: 20120928
  Serious: No
  Sender: FDA-Public Use
  Company Number: US-US-EMD SERONO, INC.-7138816

PATIENT
  Sex: Female
  Weight: 52 kg

DRUGS (1)
  1. REBIF [Suspect]
     Indication: MULTIPLE SCLEROSIS
     Route: 058
     Dates: end: 20110501

REACTIONS (7)
  - PYREXIA [None]
  - INJECTION SITE HAEMATOMA [None]
  - HYPERHIDROSIS [None]
  - CHILLS [None]
  - INAPPROPRIATE SCHEDULE OF DRUG ADMINISTRATION [None]
  - EXPIRED DRUG ADMINISTERED [None]
  - VOMITING [None]
